FAERS Safety Report 17510720 (Version 1)
Quarter: 2020Q1

REPORT INFORMATION
  Report Type: Spontaneous
  Country: US (occurrence: US)
  Receive Date: 20200226
  Receipt Date: 20200226
  Transmission Date: 20200409
  Serious: No
  Sender: FDA-Public Use
  Company Number: None

PATIENT
  Age: 26 Year
  Sex: Male

DRUGS (1)
  1. TECFIDERA [Suspect]
     Active Substance: DIMETHYL FUMARATE
     Indication: MULTIPLE SCLEROSIS
     Route: 048
     Dates: start: 202002

REACTIONS (5)
  - Multiple allergies [None]
  - Pruritus [None]
  - Asthma [None]
  - Skin burning sensation [None]
  - Urticaria [None]

NARRATIVE: CASE EVENT DATE: 20200221
